FAERS Safety Report 21888557 (Version 3)
Quarter: 2023Q2

REPORT INFORMATION
  Report Type: Spontaneous
  Country: JP (occurrence: JP)
  Receive Date: 20230120
  Receipt Date: 20230616
  Transmission Date: 20230721
  Serious: Yes (Other)
  Sender: FDA-Public Use
  Company Number: JP-INSMED-2023-00145-JPAA

PATIENT
  Age: 73 Year
  Sex: Female

DRUGS (1)
  1. ARIKAYCE [Suspect]
     Active Substance: AMIKACIN
     Indication: Mycobacterium avium complex infection
     Dosage: UNK
     Route: 055
     Dates: start: 202111, end: 202208

REACTIONS (4)
  - Hypersensitivity pneumonitis [Recovering/Resolving]
  - Weight increased [Unknown]
  - Hypoacusis [Unknown]
  - Haemoptysis [Recovered/Resolved]

NARRATIVE: CASE EVENT DATE: 20220801
